FAERS Safety Report 5835114-2 (Version None)
Quarter: 2008Q3

REPORT INFORMATION
  Report Type: 
  Country: None (occurrence: None)
  Receive Date: 20080806
  Receipt Date: 20080728
  Transmission Date: 20090109
  Serious: Yes (Other)
  Sender: FDA-Public Use
  Company Number: DE-JNJFOC-20080706538

PATIENT
  Sex: Female

DRUGS (3)
  1. IMODIUM [Suspect]
     Route: 048
  2. IMODIUM [Suspect]
     Dosage: 2 DOSES EVERY 3 OR 4 DAYS
     Route: 048
  3. IMODIUM [Suspect]
     Indication: IRRITABLE BOWEL SYNDROME
     Route: 048

REACTIONS (3)
  - ABDOMINAL DISTENSION [None]
  - ABDOMINAL PAIN [None]
  - PYREXIA [None]
